FAERS Safety Report 23639330 (Version 2)
Quarter: 2024Q2

REPORT INFORMATION
  Report Type: Spontaneous
  Country: US (occurrence: US)
  Receive Date: 20240316
  Receipt Date: 20240402
  Transmission Date: 20240716
  Serious: Yes (Death, Hospitalization)
  Sender: FDA-Public Use
  Company Number: US-TEVA-VS-3167985

PATIENT
  Age: 66 Year
  Sex: Male

DRUGS (1)
  1. METHYLPREDNISOLONE [Suspect]
     Active Substance: METHYLPREDNISOLONE
     Indication: Immune-mediated myositis
     Route: 065

REACTIONS (6)
  - Disseminated cryptococcosis [Fatal]
  - Lactic acidosis [Fatal]
  - Choroiditis [Unknown]
  - Fungaemia [Unknown]
  - Peritonitis [Unknown]
  - Multiple organ dysfunction syndrome [Fatal]
